FAERS Safety Report 9596342 (Version 1)
Quarter: 2013Q4

REPORT INFORMATION
  Report Type: Spontaneous
  Country: US (occurrence: US)
  Receive Date: 20131004
  Receipt Date: 20131004
  Transmission Date: 20140711
  Serious: No
  Sender: FDA-Public Use
  Company Number: US-VIIV HEALTHCARE LIMITED-A0990431A

PATIENT
  Sex: 0

DRUGS (1)
  1. SELZENTRY [Suspect]
     Indication: HIV INFECTION
     Route: 048
     Dates: start: 201202

REACTIONS (3)
  - Arthralgia [Unknown]
  - Joint swelling [Unknown]
  - Rash [Unknown]
